FAERS Safety Report 9420798 (Version 1)
Quarter: 2013Q3

REPORT INFORMATION
  Report Type: Spontaneous
  Country: US (occurrence: US)
  Receive Date: 20130725
  Receipt Date: 20130725
  Transmission Date: 20140515
  Serious: No
  Sender: FDA-Public Use
  Company Number: US-ABBOTT-13P-163-1086999-00

PATIENT
  Sex: Female
  Weight: 88.53 kg

DRUGS (1)
  1. SYNTHROID [Suspect]
     Indication: THYROIDECTOMY
     Dates: start: 1995, end: 1995

REACTIONS (2)
  - Dyspepsia [Unknown]
  - Drug ineffective [Unknown]
